FAERS Safety Report 14763947 (Version 1)
Quarter: 2018Q2

REPORT INFORMATION
  Report Type: Spontaneous
  Country: US (occurrence: US)
  Receive Date: 20180410
  Receipt Date: 20180410
  Transmission Date: 20180711
  Serious: Yes (Hospitalization)
  Sender: FDA-Public Use
  Company Number: None

PATIENT
  Age: 63 Year
  Sex: Female

DRUGS (3)
  1. CELEBREX [Concomitant]
     Active Substance: CELECOXIB
  2. HUMIRA [Suspect]
     Active Substance: ADALIMUMAB
     Indication: RHEUMATOID ARTHRITIS
     Route: 058
     Dates: start: 20151008
  3. ADVIL [Concomitant]
     Active Substance: IBUPROFEN

REACTIONS (7)
  - Dry mouth [None]
  - Pneumonia [None]
  - Weight decreased [None]
  - Headache [None]
  - Pain [None]
  - Injection site pain [None]
  - Myalgia [None]
